FAERS Safety Report 19065423 (Version 1)
Quarter: 2021Q1

REPORT INFORMATION
  Report Type: Spontaneous
  Country: US (occurrence: US)
  Receive Date: 20210327
  Receipt Date: 20210327
  Transmission Date: 20210420
  Serious: No
  Sender: FDA-Public Use
  Company Number: US-009507513-2103USA005580

PATIENT
  Age: 52 Year
  Sex: Male

DRUGS (13)
  1. PREVYMIS [Suspect]
     Active Substance: LETERMOVIR
     Dosage: 960 MILLIGRAM, QD
  2. MYCOPHENOLIC ACID. [Concomitant]
     Active Substance: MYCOPHENOLIC ACID
     Indication: IMMUNOSUPPRESSION
     Dosage: 720 MG TWICE DAILY
  3. PREDNISONE. [Concomitant]
     Active Substance: PREDNISONE
     Dosage: TAPERED TO 5 MG (DAILY) AT 3 MONTHS
  4. TACROLIMUS. [Concomitant]
     Active Substance: TACROLIMUS
     Indication: IMMUNOSUPPRESSION
     Dosage: 9?11 NG/ML AT 0?3 MONTHS
  5. TACROLIMUS. [Concomitant]
     Active Substance: TACROLIMUS
     Dosage: 7?9 NG/ML 3?6 MONTHS
  6. VALGANCICLOVIR HYDROCHLORIDE. [Concomitant]
     Active Substance: VALGANCICLOVIR HYDROCHLORIDE
     Indication: ANTIVIRAL PROPHYLAXIS
     Dosage: 900 MG DAILY (RENALLY DOSE ADJUSTED) FOR 6 MONTH
  7. GANCICLOVIR. [Concomitant]
     Active Substance: GANCICLOVIR
     Indication: CYTOMEGALOVIRUS INFECTION
     Dosage: UNK
     Route: 042
  8. TACROLIMUS. [Concomitant]
     Active Substance: TACROLIMUS
     Dosage: 6?8 NG/ML AFTER 6 MONTHS
  9. VALGANCICLOVIR HYDROCHLORIDE. [Concomitant]
     Active Substance: VALGANCICLOVIR HYDROCHLORIDE
     Indication: CYTOMEGALOVIRUS INFECTION
     Dosage: TREATMENT DOSING
  10. CYTOMEGALOVIRUS IMMUNE GLOBULIN [Concomitant]
     Active Substance: HUMAN CYTOMEGALOVIRUS IMMUNE GLOBULIN
     Indication: CYTOMEGALOVIRUS INFECTION
     Dosage: 150 MILLIGRAM/KILOGRAM, EVERY 48 HOURS FOR 3 DOSES
  11. PREDNISONE. [Concomitant]
     Active Substance: PREDNISONE
     Indication: IMMUNOSUPPRESSION
     Dosage: 20 MG DAILY
  12. PREVYMIS [Suspect]
     Active Substance: LETERMOVIR
     Indication: CYTOMEGALOVIRUS INFECTION
     Dosage: 960 MILLIGRAM, QD
  13. VALGANCICLOVIR HYDROCHLORIDE. [Concomitant]
     Active Substance: VALGANCICLOVIR HYDROCHLORIDE
     Dosage: HIGH?DOSE

REACTIONS (1)
  - Off label use [Unknown]
